FAERS Safety Report 5411691-0 (Version None)
Quarter: 2007Q3

REPORT INFORMATION
  Report Type: 
  Country: None (occurrence: None)
  Receive Date: 20070810
  Receipt Date: 20070801
  Transmission Date: 20080115
  Serious: Yes (Other)
  Sender: FDA-Public Use
  Company Number: GB-PFIZER INC-2007065115

PATIENT
  Age: 28 Year
  Sex: Male

DRUGS (1)
  1. VARENICLINE TABLETS [Suspect]
     Dosage: TEXT:1MG BID EVERY DAY TDD:2MG
     Route: 048

REACTIONS (2)
  - DIARRHOEA [None]
  - RENAL PAIN [None]
